FAERS Safety Report 6202463-8 (Version None)
Quarter: 2009Q2

REPORT INFORMATION
  Report Type: 
  Country: None (occurrence: None)
  Receive Date: 20090521
  Receipt Date: 20090521
  Transmission Date: 20091009
  Serious: Yes (Hospitalization)
  Sender: FDA-Public Use
  Company Number: None

PATIENT
  Age: 72 Year
  Sex: Male

DRUGS (1)
  1. INSULIN ASPART [Suspect]
     Indication: DIABETES MELLITUS
     Dosage: VIA PUMP UNITS OTHER SQ
     Route: 058
     Dates: start: 20030116

REACTIONS (1)
  - HYPOGLYCAEMIC SEIZURE [None]
